FAERS Safety Report 5957489-6 (Version None)
Quarter: 2008Q4

REPORT INFORMATION
  Report Type: 
  Country: None (occurrence: None)
  Receive Date: 20081114
  Receipt Date: 20081105
  Transmission Date: 20090506
  Serious: Yes (Congenital Anomaly)
  Sender: FDA-Public Use
  Company Number: 231034J07USA

PATIENT
  Sex: Female
  Weight: 4 kg

DRUGS (4)
  1. REBIF [Suspect]
     Indication: MULTIPLE SCLEROSIS
     Dates: end: 20070101
  2. LORTAB [Suspect]
     Indication: ENDOMETRIOSIS
     Dates: end: 20070101
  3. ZOLOFT [Suspect]
     Indication: DEPRESSION
     Dates: end: 20070101
  4. BIRTH CONTROL PILL (ORAL CONTRACEPTIVE NOS) [Suspect]
     Indication: CONTRACEPTION
     Dates: end: 20070101

REACTIONS (2)
  - MATERNAL DRUGS AFFECTING FOETUS [None]
  - SOLITARY KIDNEY [None]
